FAERS Safety Report 5278453-9 (Version None)
Quarter: 2007Q1

REPORT INFORMATION
  Report Type: 
  Country: None (occurrence: None)
  Receive Date: 20070322
  Receipt Date: 20070312
  Transmission Date: 20070707
  Serious: Yes (Life-Threatening, Hospitalization, Disabling)
  Sender: FDA-Public Use
  Company Number: E2020-00972-SPO-GB

PATIENT
  Age: 86 Year
  Sex: Male
  Weight: 73.4 kg

DRUGS (6)
  1. ARICEPT [Suspect]
     Indication: DEMENTIA ALZHEIMER'S TYPE
     Dosage: SEE IMAGE
     Route: 048
     Dates: start: 20050201, end: 20050719
  2. ARICEPT [Suspect]
     Indication: DEMENTIA ALZHEIMER'S TYPE
     Dosage: SEE IMAGE
     Route: 048
     Dates: start: 20050720, end: 20070214
  3. OMEPRAZOLE [Concomitant]
  4. GAVISCON [Concomitant]
  5. SENNA [Concomitant]
  6. CETIRIZINE HYDROCHLORIDE [Concomitant]

REACTIONS (4)
  - ANAEMIA HAEMOLYTIC AUTOIMMUNE [None]
  - CIRCULATORY COLLAPSE [None]
  - LETHARGY [None]
  - SINUS BRADYCARDIA [None]
